FAERS Safety Report 5038996-X (Version None)
Quarter: 2006Q2

REPORT INFORMATION
  Report Type: 
  Country: None (occurrence: None)
  Receive Date: 20060628
  Receipt Date: 20060628
  Transmission Date: 20061013
  Serious: Yes (Other)
  Sender: FDA-Public Use
  Company Number: None

PATIENT
  Age: 64 Year
  Sex: Female

DRUGS (1)
  1. CYTOMEL [Suspect]
     Indication: THYROID DISORDER
     Dosage: 5 MCG BID PO
     Route: 048
     Dates: start: 20060401, end: 20060627

REACTIONS (3)
  - ASTHENIA [None]
  - MYALGIA [None]
  - PHARMACEUTICAL PRODUCT COMPLAINT [None]
